FAERS Safety Report 8989813 (Version 1)
Quarter: 2012Q4

REPORT INFORMATION
  Report Type: 
  Country: DE (occurrence: DE)
  Receive Date: 20121228
  Receipt Date: 20121228
  Transmission Date: 20130627
  Serious: Yes (Death, Life-Threatening, Hospitalization, Congenital Anomaly)
  Sender: FDA-Public Use
  Company Number: DE-MYLANLABS-2012S1026012

PATIENT
  Age: 0 Year
  Sex: Male
  Weight: 3.63 kg

DRUGS (2)
  1. FLUOXETINE [Suspect]
     Dosage: 40 [mg/d ]/ after gestational week 29: 20mg/d
     Route: 064
     Dates: end: 20120627
  2. FEMIBION [Concomitant]
     Dosage: 0.8 [mg/d ]
     Route: 064

REACTIONS (2)
  - Double outlet right ventricle [Fatal]
  - Exposure during pregnancy [Recovered/Resolved]
